FAERS Safety Report 11346823 (Version 1)
Quarter: 2015Q3

REPORT INFORMATION
  Report Type: Spontaneous
  Country: US (occurrence: US)
  Receive Date: 20150803
  Receipt Date: 20150803
  Transmission Date: 20151125
  Serious: No
  Sender: FDA-Public Use
  Company Number: US-ELI_LILLY_AND_COMPANY-US201101002601

PATIENT
  Age: 19 Year
  Sex: Male

DRUGS (4)
  1. ZYPREXA [Suspect]
     Active Substance: OLANZAPINE
     Dosage: 20 MG, DAILY (1/D)
     Dates: start: 201012
  2. CONCERTA [Concomitant]
     Active Substance: METHYLPHENIDATE HYDROCHLORIDE
  3. RISPERDAL [Concomitant]
     Active Substance: RISPERIDONE
  4. ZYPREXA [Suspect]
     Active Substance: OLANZAPINE
     Indication: SCHIZOPHRENIA
     Dosage: 20 MG, DAILY (1/D)

REACTIONS (2)
  - Osteoarthritis [Not Recovered/Not Resolved]
  - General symptom [Unknown]

NARRATIVE: CASE EVENT DATE: 2010
